FAERS Safety Report 25582299 (Version 1)
Quarter: 2025Q3

REPORT INFORMATION
  Report Type: Spontaneous
  Country: EU (occurrence: EU)
  Receive Date: 20250720
  Receipt Date: 20250720
  Transmission Date: 20251020
  Serious: Yes (Other)
  Sender: SANDOZ
  Company Number: EU-PFIZER INC-2019368013

PATIENT
  Age: 39 Year
  Sex: Female
  Weight: 55 kg

DRUGS (20)
  1. AMPHOTERICIN B [Suspect]
     Active Substance: AMPHOTERICIN B
     Indication: Aspergillus infection
     Dosage: UNK UNK, Q2W
     Route: 065
  2. AMPHOTERICIN B [Suspect]
     Active Substance: AMPHOTERICIN B
     Indication: Cerebral aspergillosis
  3. BENDAMUSTINE HYDROCHLORIDE [Suspect]
     Active Substance: BENDAMUSTINE HYDROCHLORIDE
     Indication: Chronic lymphocytic leukaemia
     Route: 042
  4. CASPOFUNGIN [Suspect]
     Active Substance: CASPOFUNGIN
     Indication: Aspergillus infection
     Dosage: 150 MILLIGRAM, QD (HIGH DOSE)
     Route: 065
  5. CASPOFUNGIN [Suspect]
     Active Substance: CASPOFUNGIN
     Indication: Cerebral aspergillosis
  6. ISAVUCONAZOLE [Suspect]
     Active Substance: ISAVUCONAZOLE
     Indication: Aspergillus infection
     Dosage: 200 MILLIGRAM, QD
     Route: 065
  7. ISAVUCONAZOLE [Suspect]
     Active Substance: ISAVUCONAZOLE
     Dosage: 300 MILLIGRAM, QD
     Route: 065
  8. VORICONAZOLE [Suspect]
     Active Substance: VORICONAZOLE
     Dosage: 1200 MILLIGRAM, ONCE A DAY 400 MG, TID
     Route: 065
  9. VORICONAZOLE [Suspect]
     Active Substance: VORICONAZOLE
     Dosage: 300 MILLIGRAM, ONCE A DAY
     Route: 065
  10. VORICONAZOLE [Suspect]
     Active Substance: VORICONAZOLE
     Indication: Cerebral aspergillosis
     Dosage: 400 MILLIGRAM, ONCE A DAY 200 MG, BID
     Route: 048
  11. VORICONAZOLE [Suspect]
     Active Substance: VORICONAZOLE
     Dosage: 600 MILLIGRAM, ONCE A DAY 300 MG, BID
     Route: 048
  12. VORICONAZOLE [Suspect]
     Active Substance: VORICONAZOLE
     Indication: Aspergillus infection
     Dosage: 650 MG PER DAY DIVIDED INTO 2 INTAKES
     Route: 048
  13. VORICONAZOLE [Suspect]
     Active Substance: VORICONAZOLE
     Route: 065
  14. VORICONAZOLE [Suspect]
     Active Substance: VORICONAZOLE
     Route: 048
  15. VORICONAZOLE [Suspect]
     Active Substance: VORICONAZOLE
     Route: 042
  16. VORICONAZOLE [Suspect]
     Active Substance: VORICONAZOLE
     Indication: Aspergillus infection
     Route: 065
  17. BENDAMUSTINE [Concomitant]
     Active Substance: BENDAMUSTINE
     Indication: Chronic lymphocytic leukaemia
     Route: 042
  18. BENDAMUSTINE [Concomitant]
     Active Substance: BENDAMUSTINE
     Indication: Chronic myeloid leukaemia
  19. CASPOFUNGIN [Concomitant]
     Active Substance: CASPOFUNGIN
     Indication: Cerebral aspergillosis
     Dosage: 150 MILLIGRAM, ONCE A DAY
     Route: 065
  20. CASPOFUNGIN [Concomitant]
     Active Substance: CASPOFUNGIN
     Indication: Aspergillus infection

REACTIONS (13)
  - Fungal test positive [Unknown]
  - Condition aggravated [Unknown]
  - Drug level decreased [Unknown]
  - Drug level decreased [Not Recovered/Not Resolved]
  - Drug level below therapeutic [Unknown]
  - Hepatic cytolysis [Unknown]
  - Neutropenia [Unknown]
  - Treatment failure [Recovered/Resolved]
  - Cerebral aspergillosis [Recovered/Resolved]
  - Cholestasis [Unknown]
  - Generalised tonic-clonic seizure [Unknown]
  - Prescribed overdose [Unknown]
  - Off label use [Unknown]
